FAERS Safety Report 15113834 (Version 1)
Quarter: 2018Q3

REPORT INFORMATION
  Report Type: Report from Study
  Country: IT (occurrence: IT)
  Receive Date: 20180706
  Receipt Date: 20180706
  Transmission Date: 20181010
  Serious: Yes (Other)
  Sender: FDA-Public Use
  Company Number: IT-TEVA-2018-IT-921117

PATIENT
  Age: 45 Year
  Sex: Female

DRUGS (2)
  1. TRIATEC [Concomitant]
     Indication: HYPERTENSION
     Route: 065
  2. LEVOFLOXACIN. [Suspect]
     Active Substance: LEVOFLOXACIN
     Indication: PNEUMONITIS
     Route: 048
     Dates: start: 20180505, end: 20180505

REACTIONS (3)
  - Generalised erythema [Recovered/Resolved]
  - Throat irritation [Recovered/Resolved]
  - Lip oedema [Recovered/Resolved]

NARRATIVE: CASE EVENT DATE: 20180505
